FAERS Safety Report 18169410 (Version 1)
Quarter: 2020Q3

REPORT INFORMATION
  Report Type: Spontaneous
  Country: CA (occurrence: CA)
  Receive Date: 20200818
  Receipt Date: 20200818
  Transmission Date: 20201103
  Serious: Yes (Death, Other)
  Sender: FDA-Public Use
  Company Number: CA-BAXTER-2020BAX016693

PATIENT
  Age: 23 Month
  Sex: Female

DRUGS (12)
  1. PROCYTOX (CYCLOPHOSPHAMIDE) 2000MG/VIAL [Suspect]
     Active Substance: CYCLOPHOSPHAMIDE
     Indication: CHEMOTHERAPY
     Dosage: DOSAGE FORM: NOT SPECIFIED
     Route: 065
  2. MYCOPHENOLATE MOFETIL. [Suspect]
     Active Substance: MYCOPHENOLATE MOFETIL
     Indication: IMMUNOSUPPRESSANT DRUG THERAPY
     Dosage: DOSAGE FORM: NOT SPECIFIED
     Route: 065
  3. DOXIL [Suspect]
     Active Substance: DOXORUBICIN HYDROCHLORIDE
     Indication: CHEMOTHERAPY
     Route: 042
  4. GANCICLOVIR. [Suspect]
     Active Substance: GANCICLOVIR
     Indication: PRODUCT USED FOR UNKNOWN INDICATION
     Route: 042
  5. PREDNISONE. [Suspect]
     Active Substance: PREDNISONE
     Indication: IMMUNOSUPPRESSANT DRUG THERAPY
     Dosage: DOSAGE FORM: NOT SPECIFIED
     Route: 065
  6. TACROLIMUS. [Suspect]
     Active Substance: TACROLIMUS
     Indication: IMMUNOSUPPRESSION
     Route: 065
  7. CICLOSPORIN [Suspect]
     Active Substance: CYCLOSPORINE
     Indication: IMMUNOSUPPRESSANT DRUG THERAPY
     Dosage: DOSAGE FORM: NOT SPECIFIED
     Route: 065
  8. GANCICLOVIR. [Suspect]
     Active Substance: GANCICLOVIR
     Indication: CYTOMEGALOVIRUS INFECTION
     Route: 065
  9. GANCICLOVIR. [Suspect]
     Active Substance: GANCICLOVIR
     Route: 048
  10. ACYCLOVIR. [Suspect]
     Active Substance: ACYCLOVIR
     Indication: ANTIVIRAL PROPHYLAXIS
     Dosage: DOSAGE FORM: NOT SPECIFIED
     Route: 065
  11. RITUXIMAB. [Suspect]
     Active Substance: RITUXIMAB
     Indication: IMMUNOSUPPRESSION
     Route: 065
  12. VINCRISTINE SULFATE. [Suspect]
     Active Substance: VINCRISTINE SULFATE
     Indication: CHEMOTHERAPY
     Route: 065

REACTIONS (5)
  - Smooth muscle cell neoplasm [Fatal]
  - Haemorrhage intracranial [Fatal]
  - Multiple organ dysfunction syndrome [Fatal]
  - Post transplant lymphoproliferative disorder [Fatal]
  - Epstein-Barr virus infection [Fatal]
